FAERS Safety Report 6620017-6 (Version None)
Quarter: 2010Q1

REPORT INFORMATION
  Report Type: 
  Country: None (occurrence: None)
  Receive Date: 20100309
  Receipt Date: 20081203
  Transmission Date: 20100710
  Serious: Yes (Hospitalization)
  Sender: FDA-Public Use
  Company Number: FR-B.I. PHARMACEUTICALS,INC./RIDGEFIELD-2008-FF-00871FF

PATIENT
  Sex: Male

DRUGS (6)
  1. SPIRIVA [Suspect]
     Dosage: 36MCG
     Route: 055
     Dates: end: 20080901
  2. MODURETIC 5-50 [Concomitant]
     Route: 048
     Dates: end: 20080901
  3. ALLOPURINOL [Concomitant]
     Route: 048
     Dates: end: 20080901
  4. KARDEGIC [Concomitant]
     Route: 048
     Dates: end: 20080901
  5. SYMBICORT [Concomitant]
     Route: 055
     Dates: end: 20080901
  6. BISOPROLOL FUMARATE [Concomitant]
     Route: 048
     Dates: end: 20080901

REACTIONS (4)
  - CONFUSIONAL STATE [None]
  - CONSTIPATION [None]
  - FAECALOMA [None]
  - HYPONATRAEMIA [None]
